FAERS Safety Report 6414415-3 (Version None)
Quarter: 2009Q4

REPORT INFORMATION
  Report Type: 
  Country: None (occurrence: None)
  Receive Date: 20091021
  Receipt Date: 20091009
  Transmission Date: 20100525
  Serious: Yes (Life-Threatening, Other)
  Sender: FDA-Public Use
  Company Number: 2009S1000091

PATIENT
  Age: 2 Day
  Sex: Female

DRUGS (2)
  1. INOMAX [Suspect]
     Indication: NEONATAL ASPIRATION
     Dosage: 20 PPM;CONT;INH
     Route: 055
     Dates: start: 20091008
  2. INOMAX [Suspect]
     Indication: PERSISTENT FOETAL CIRCULATION
     Dosage: 20 PPM;CONT;INH
     Route: 055
     Dates: start: 20091008

REACTIONS (3)
  - BLOOD PRESSURE INCREASED [None]
  - DEVICE MALFUNCTION [None]
  - OXYGEN SATURATION DECREASED [None]
